FAERS Safety Report 4324511-2 (Version None)
Quarter: 2004Q1

REPORT INFORMATION
  Report Type: 
  Country: None (occurrence: None)
  Receive Date: 20040326
  Receipt Date: 20040224
  Transmission Date: 20041129
  Serious: No
  Sender: FDA-Public Use
  Company Number: US-GLAXOSMITHKLINE-A0499595A

PATIENT
  Age: 38 Year
  Sex: Male

DRUGS (10)
  1. ADVAIR DISKUS 100/50 [Suspect]
     Route: 055
  2. ULTRAM [Concomitant]
  3. FIORINAL [Concomitant]
  4. MAXALT [Concomitant]
  5. LAMICTAL [Concomitant]
  6. DARVOCET-N 100 [Concomitant]
  7. LIPITOR [Concomitant]
  8. PROMETHAZINE [Concomitant]
  9. ALLEGRA [Concomitant]
  10. FLONASE [Concomitant]

REACTIONS (3)
  - DYSPNOEA [None]
  - PHARMACEUTICAL PRODUCT COMPLAINT [None]
  - THROAT IRRITATION [None]
